FAERS Safety Report 22218015 (Version 2)
Quarter: 2023Q2

REPORT INFORMATION
  Report Type: Spontaneous
  Country: CH (occurrence: CH)
  Receive Date: 20230417
  Receipt Date: 20230508
  Transmission Date: 20230722
  Serious: Yes (Other)
  Sender: FDA-Public Use
  Company Number: CH-002147023-NVSC2023CH068258

PATIENT
  Sex: Female

DRUGS (3)
  1. KESIMPTA [Suspect]
     Active Substance: OFATUMUMAB
     Indication: Multiple sclerosis
     Dosage: 20 MG-FIRST INJECTION
     Route: 058
     Dates: start: 20230313
  2. KESIMPTA [Suspect]
     Active Substance: OFATUMUMAB
     Dosage: 20 MG-SECOND INJECTION
     Route: 058
     Dates: start: 20230321
  3. KESIMPTA [Suspect]
     Active Substance: OFATUMUMAB
     Dosage: 20 MG-THIRD INJECTION
     Route: 058
     Dates: start: 20230403

REACTIONS (7)
  - Dyspnoea [Recovering/Resolving]
  - Speech disorder [Recovering/Resolving]
  - Hypersensitivity [Recovering/Resolving]
  - Asthenia [Recovering/Resolving]
  - Influenza like illness [Recovering/Resolving]
  - Rash [Recovering/Resolving]
  - Pain in extremity [Recovering/Resolving]

NARRATIVE: CASE EVENT DATE: 20230313
